FAERS Safety Report 4601404-4 (Version None)
Quarter: 2005Q1

REPORT INFORMATION
  Report Type: 
  Country: None (occurrence: None)
  Receive Date: 20050203
  Receipt Date: 20040302
  Transmission Date: 20050727
  Serious: Yes (Other)
  Sender: FDA-Public Use
  Company Number: PHEH2004US01439

PATIENT
  Sex: Male

DRUGS (3)
  1. RITALIN LA [Suspect]
  2. ACCUTANE [Concomitant]
  3. OVER THE COUNTER ANTIHISTAMINES (NO INGREDIENTS/SUBSTANCES) [Concomitant]

REACTIONS (6)
  - ANXIETY [None]
  - CONFUSIONAL STATE [None]
  - DRUG ABUSER [None]
  - FATIGUE [None]
  - HEADACHE [None]
  - LETHARGY [None]
